FAERS Safety Report 21538015 (Version 1)
Quarter: 2022Q4

REPORT INFORMATION
  Report Type: Report from Study
  Country: CH (occurrence: CH)
  Receive Date: 20221101
  Receipt Date: 20221101
  Transmission Date: 20230113
  Serious: Yes (Hospitalization)
  Sender: FDA-Public Use
  Company Number: CH-ABBVIE-4183266

PATIENT
  Sex: Male

DRUGS (5)
  1. CARBIDOPA\LEVODOPA [Suspect]
     Active Substance: CARBIDOPA\LEVODOPA
     Indication: Parkinson^s disease
     Dosage: MD: 4 ML, CRD: 3.9 ML/H, ED: 1.5 ML, CRN: 3.2 ML/H
     Route: 050
     Dates: start: 202209
  2. CARBIDOPA\LEVODOPA [Suspect]
     Active Substance: CARBIDOPA\LEVODOPA
     Dosage: MD: 2.5 ML, CRD: 4 ML/H, ED: 1 ML
     Route: 050
     Dates: start: 20220407, end: 20220408
  3. CARBIDOPA\LEVODOPA [Suspect]
     Active Substance: CARBIDOPA\LEVODOPA
     Dosage: MD: 1.5 ML, CRD: 3.8 ML/H, ED: 1 ML, CRN: 2.5 ML/H
     Route: 050
     Dates: start: 20220408, end: 20220420
  4. CARBIDOPA\LEVODOPA [Suspect]
     Active Substance: CARBIDOPA\LEVODOPA
     Dosage: MD: 4 ML, CRD: 3.7 ML/H, ED: 1.5 ML, CRN: 3.2 ML/H
     Route: 050
     Dates: start: 20220509, end: 202209
  5. CARBIDOPA\LEVODOPA [Suspect]
     Active Substance: CARBIDOPA\LEVODOPA
     Dosage: MD: 4 ML, CRD: 3.8 ML/H, ED: 1 ML, CRN: 3.2 ML/H
     Route: 050
     Dates: start: 20220420, end: 20220509

REACTIONS (9)
  - Epilepsy [Recovered/Resolved]
  - Dizziness [Not Recovered/Not Resolved]
  - Mobility decreased [Not Recovered/Not Resolved]
  - Tremor [Recovering/Resolving]
  - Stoma site erythema [Not Recovered/Not Resolved]
  - Wheelchair user [Not Recovered/Not Resolved]
  - Gait disturbance [Not Recovered/Not Resolved]
  - Loss of personal independence in daily activities [Not Recovered/Not Resolved]
  - Stoma site discharge [Not Recovered/Not Resolved]

NARRATIVE: CASE EVENT DATE: 20220101
